FAERS Safety Report 10989587 (Version 2)
Quarter: 2015Q2

REPORT INFORMATION
  Report Type: Spontaneous
  Country: SE (occurrence: SE)
  Receive Date: 20150406
  Receipt Date: 20150627
  Transmission Date: 20150821
  Serious: Yes (Hospitalization)
  Sender: FDA-Public Use
  Company Number: SE-ACCORD-029697

PATIENT
  Age: 78 Year
  Sex: Female

DRUGS (5)
  1. LOSARTAN ACTAVIS [Suspect]
     Active Substance: LOSARTAN
     Indication: ESSENTIAL HYPERTENSION
     Dosage: AUTHORIZATION/APPLICATION NUMBER : 24056
     Dates: start: 20130415, end: 20140203
  2. PANTOPRAZOLE [Concomitant]
     Active Substance: PANTOPRAZOLE SODIUM
     Dosage: STRENGTH: 20 MG
  3. OXYCONTIN [Concomitant]
     Active Substance: OXYCODONE HYDROCHLORIDE
     Dosage: AUTHORIZATION/APPLICATION NUMBER :13830
  4. POSTAFEN [Concomitant]
     Active Substance: BUCLIZINE HYDROCHLORIDE
     Dosage: AUTHORIZATION/APPLICATION NUMBER : 4595
  5. AMLODIPINE [Suspect]
     Active Substance: AMLODIPINE BESYLATE
     Indication: ESSENTIAL HYPERTENSION
     Dosage: AUTHORIZATION/APPLICATION NUMBER: 26703
     Dates: start: 20120301, end: 20140203

REACTIONS (3)
  - Bradycardia [Recovered/Resolved]
  - Lethargy [Unknown]
  - Dizziness [Unknown]

NARRATIVE: CASE EVENT DATE: 20140201
